FAERS Safety Report 4896437-7 (Version None)
Quarter: 2006Q1

REPORT INFORMATION
  Report Type: 
  Country: None (occurrence: None)
  Receive Date: 20060126
  Receipt Date: 20060113
  Transmission Date: 20060701
  Serious: Yes (Other)
  Sender: FDA-Public Use
  Company Number: 2006008494

PATIENT
  Sex: Female

DRUGS (12)
  1. LYRICA [Suspect]
     Indication: NEURALGIA
     Dosage: 150 MG (75 MG, 2 IN 1 D), ORAL
     Route: 048
     Dates: start: 20051102, end: 20051120
  2. FUROSEMIDE [Concomitant]
  3. CITALOPRAM (CITALOPRAM) [Concomitant]
  4. ANASTROZOLE (ANASTROZOLE) [Concomitant]
  5. CALCIUM CARBONATE (CALCIUM CARBONATE) [Concomitant]
  6. ALENDRONIC ACID (ALENDRONIC ACID) [Concomitant]
  7. PERINDOPRIL (PERINDOPRIL) [Concomitant]
  8. DIPYRIDAMOLE [Concomitant]
  9. BACLOFEN [Concomitant]
  10. SIMVASTATIN [Concomitant]
  11. SALBUTAMOL (SALBUTAMOL) [Concomitant]
  12. FLUTICASONE PROPIONATE [Concomitant]

REACTIONS (3)
  - CONFUSIONAL STATE [None]
  - NEUTROPENIA [None]
  - SOMNOLENCE [None]
